FAERS Safety Report 5072007-5 (Version None)
Quarter: 2006Q3

REPORT INFORMATION
  Report Type: 
  Country: None (occurrence: None)
  Receive Date: 20060801
  Receipt Date: 20060717
  Transmission Date: 20061208
  Serious: Yes (Hospitalization)
  Sender: FDA-Public Use
  Company Number: 2006PV017645

PATIENT
  Age: 61 Year
  Sex: Female
  Weight: 87.0906 kg

DRUGS (8)
  1. BYETTA [Suspect]
     Indication: DIABETES MELLITUS NON-INSULIN-DEPENDENT
     Dosage: 5 MCG; BID; SC
     Route: 058
     Dates: start: 20060708, end: 20060716
  2. NOVOLOG [Concomitant]
  3. LANTUS [Concomitant]
  4. NORVASC [Concomitant]
  5. TOPROL-XL [Concomitant]
  6. LOTENSIN [Concomitant]
  7. CLONIDINE [Concomitant]
  8. NITROGLYCERIN TABS [Concomitant]

REACTIONS (11)
  - CHEST PAIN [None]
  - CONDITION AGGRAVATED [None]
  - DEHYDRATION [None]
  - FEELING ABNORMAL [None]
  - FORMICATION [None]
  - HEART RATE INCREASED [None]
  - HOT FLUSH [None]
  - HYPERTENSION [None]
  - NECK PAIN [None]
  - VOMITING [None]
  - WEIGHT DECREASED [None]
